FAERS Safety Report 14672104 (Version 1)
Quarter: 2018Q1

REPORT INFORMATION
  Report Type: Spontaneous
  Country: BR (occurrence: BR)
  Receive Date: 20180323
  Receipt Date: 20180323
  Transmission Date: 20180509
  Serious: Yes (Other)
  Sender: FDA-Public Use
  Company Number: BR-ASTRAZENECA-2018SE35272

PATIENT
  Age: 83 Year
  Sex: Male

DRUGS (2)
  1. CASODEX [Suspect]
     Active Substance: BICALUTAMIDE
     Indication: PROSTATE CANCER
     Dosage: BICALUTAMIDE (EUROFARMA) UNKNOWN
     Route: 048
     Dates: start: 201801
  2. CASODEX [Suspect]
     Active Substance: BICALUTAMIDE
     Indication: PROSTATE CANCER
     Dosage: 50.0MG UNKNOWN
     Route: 048
     Dates: end: 201801

REACTIONS (1)
  - Malignant neoplasm progression [Not Recovered/Not Resolved]
